FAERS Safety Report 13130913 (Version 1)
Quarter: 2017Q1

REPORT INFORMATION
  Report Type: Spontaneous
  Country: IT (occurrence: IT)
  Receive Date: 20170119
  Receipt Date: 20170119
  Transmission Date: 20170428
  Serious: Yes (Hospitalization)
  Sender: FDA-Public Use
  Company Number: IT-BAYER-2017-010313

PATIENT
  Age: 84 Year
  Sex: Female

DRUGS (7)
  1. ACETYLSALICYLIC ACID({=100 MG) [Suspect]
     Active Substance: ASPIRIN
     Indication: THROMBOSIS PROPHYLAXIS
     Dosage: 1 DF, QD
     Route: 048
     Dates: start: 20160101, end: 20161220
  2. LANSOX [Concomitant]
     Active Substance: LANSOPRAZOLE
     Route: 048
  3. ZYRLEX [Concomitant]
     Route: 048
  4. SINEMET [Concomitant]
     Active Substance: CARBIDOPA\LEVODOPA
     Route: 048
  5. METFORMIN [Concomitant]
     Active Substance: METFORMIN HYDROCHLORIDE
     Route: 048
  6. TRIATEC [Concomitant]
     Active Substance: RAMIPRIL
     Route: 048
  7. LYRICA [Concomitant]
     Active Substance: PREGABALIN
     Route: 048

REACTIONS (2)
  - Gaze palsy [Unknown]
  - Cerebral haemorrhage [Unknown]

NARRATIVE: CASE EVENT DATE: 20161220
